FAERS Safety Report 5281483-4 (Version None)
Quarter: 2007Q1

REPORT INFORMATION
  Report Type: 
  Country: None (occurrence: None)
  Receive Date: 20070330
  Receipt Date: 20070319
  Transmission Date: 20070707
  Serious: Yes (Other)
  Sender: FDA-Public Use
  Company Number: CA-JNJFOC-20070200512

PATIENT
  Sex: Female
  Weight: 109 kg

DRUGS (2)
  1. REMICADE [Suspect]
     Indication: RHEUMATOID ARTHRITIS
     Route: 042
  2. BENADRYL [Concomitant]
     Indication: PREMEDICATION
     Route: 048

REACTIONS (2)
  - OEDEMA PERIPHERAL [None]
  - SKIN DISCOLOURATION [None]
